FAERS Safety Report 6810931-0 (Version None)
Quarter: 2010Q2

REPORT INFORMATION
  Report Type: 
  Country: None (occurrence: None)
  Receive Date: 20100630
  Receipt Date: 20081107
  Transmission Date: 20101027
  Serious: No
  Sender: FDA-Public Use
  Company Number: US-PFIZER INC-2008076824

PATIENT
  Age: 68 Year
  Sex: Female
  Weight: 70.5 kg

DRUGS (3)
  1. ESTRING [Suspect]
     Indication: ATROPHIC VULVOVAGINITIS
     Dates: start: 20040101, end: 20080912
  2. VALSARTAN [Concomitant]
     Indication: HYPERTENSION
  3. LIPITOR [Concomitant]
     Indication: BLOOD CHOLESTEROL INCREASED

REACTIONS (3)
  - LICHEN SCLEROSUS [None]
  - VULVOVAGINAL DRYNESS [None]
  - WITHDRAWAL SYNDROME [None]
